FAERS Safety Report 7392638-7 (Version None)
Quarter: 2011Q2

REPORT INFORMATION
  Report Type: 
  Country: None (occurrence: None)
  Receive Date: 20110404
  Receipt Date: 20110324
  Transmission Date: 20111010
  Serious: Yes (Hospitalization, Other)
  Sender: FDA-Public Use
  Company Number: JP-ASTRAZENECA-2010SE52011

PATIENT
  Age: 28 Year
  Sex: Male
  Weight: 70 kg

DRUGS (27)
  1. SEROQUEL [Suspect]
     Dosage: 2000 MG ONCE, 10-12 DAYS DOSE
     Route: 048
     Dates: start: 20101019, end: 20101019
  2. SEROQUEL [Suspect]
     Route: 048
  3. TASMOLIN [Suspect]
     Indication: PARKINSONISM
     Route: 048
     Dates: start: 20100105
  4. ABILIFY [Suspect]
     Route: 048
  5. SEROQUEL [Suspect]
     Route: 048
     Dates: end: 20101018
  6. SEROQUEL [Suspect]
     Route: 048
     Dates: end: 20101018
  7. ABILIFY [Suspect]
     Indication: DEPRESSION
     Route: 048
     Dates: start: 20071009, end: 20101018
  8. DEPAS [Suspect]
     Indication: ANXIETY
     Route: 048
     Dates: start: 20071009
  9. SEROQUEL [Suspect]
     Indication: SCHIZOPHRENIA
     Route: 048
     Dates: start: 20091221
  10. SEROQUEL [Suspect]
     Dosage: 2000 MG ONCE, 10-12 DAYS DOSE
     Route: 048
     Dates: start: 20101019, end: 20101019
  11. DEPAS [Suspect]
     Route: 048
     Dates: end: 20101018
  12. DEPAS [Suspect]
     Dosage: 10-12 DAYS DOSE
     Route: 048
     Dates: start: 20101019, end: 20101019
  13. TASMOLIN [Suspect]
     Route: 048
     Dates: end: 20101018
  14. ABILIFY [Suspect]
     Dosage: 10-12 DAYS DOSE
     Route: 048
     Dates: start: 20101019, end: 20101019
  15. BENZALIN [Suspect]
     Dosage: 12-12 DAYS DOSE
     Route: 048
     Dates: start: 20101019, end: 20101019
  16. AKINETON [Concomitant]
     Route: 048
     Dates: end: 20101019
  17. SEROQUEL [Suspect]
     Route: 048
  18. ABILIFY [Suspect]
     Dosage: 10-12 DAYS DOSE
     Route: 048
     Dates: start: 20101019, end: 20101019
  19. DEPAS [Suspect]
     Route: 048
  20. TASMOLIN [Suspect]
     Dosage: 10-12 DAYS DOSE
     Route: 048
     Dates: start: 20101019, end: 20101019
  21. BENZALIN [Suspect]
     Indication: SCHIZOPHRENIA
     Route: 048
     Dates: end: 20101018
  22. BENZALIN [Suspect]
     Indication: DEPRESSION
     Route: 048
     Dates: end: 20101018
  23. BENZALIN [Suspect]
     Dosage: 12-12 DAYS DOSE
     Route: 048
     Dates: start: 20101019, end: 20101019
  24. SEROQUEL [Suspect]
     Indication: DEPRESSION
     Route: 048
     Dates: start: 20091221
  25. TASMOLIN [Suspect]
     Route: 048
  26. ABILIFY [Suspect]
     Indication: SCHIZOPHRENIA
     Route: 048
     Dates: start: 20071009, end: 20101018
  27. ABILIFY [Suspect]
     Route: 048

REACTIONS (4)
  - COMA [None]
  - SUICIDE ATTEMPT [None]
  - INTENTIONAL OVERDOSE [None]
  - PARKINSONISM [None]
